FAERS Safety Report 21908540 (Version 13)
Quarter: 2025Q2

REPORT INFORMATION
  Report Type: Spontaneous
  Country: CA (occurrence: CA)
  Receive Date: 20230125
  Receipt Date: 20250428
  Transmission Date: 20250717
  Serious: Yes (Hospitalization, Other)
  Sender: MYLAN
  Company Number: CA-MYLANLABS-2021404858

PATIENT
  Age: 57 Year
  Sex: Female
  Weight: 55.32 kg

DRUGS (16)
  1. REVATIO [Suspect]
     Active Substance: SILDENAFIL CITRATE
     Indication: Pulmonary arterial hypertension
     Dosage: 30 MILLIGRAM, TID (30 MG, 3X/DAY)
     Dates: start: 20061214
  2. REVATIO [Suspect]
     Active Substance: SILDENAFIL CITRATE
     Dosage: 50 MILLIGRAM, TID (THREE TIMES A DAY)
     Dates: start: 20061214
  3. ALDACTONE [Concomitant]
     Active Substance: SPIRONOLACTONE
  4. BOSENTAN [Concomitant]
     Active Substance: BOSENTAN
  5. EPOPROSTENOL [Concomitant]
     Active Substance: EPOPROSTENOL
  6. FOLIC ACID [Concomitant]
     Active Substance: FOLIC ACID
  7. IRON [Concomitant]
     Active Substance: IRON
  8. METHOTREXATE [Concomitant]
     Active Substance: METHOTREXATE
  9. ONDANSETRON [Concomitant]
     Active Substance: ONDANSETRON
  10. PLAQUENIL [Concomitant]
     Active Substance: HYDROXYCHLOROQUINE SULFATE
  11. PANTOPRAZOLE SODIUM [Concomitant]
     Active Substance: PANTOPRAZOLE SODIUM
  12. PREDNISONE [Concomitant]
     Active Substance: PREDNISONE
  13. WARFARIN [Concomitant]
     Active Substance: WARFARIN
  14. OPSUMIT [Concomitant]
     Active Substance: MACITENTAN
  15. EPOPROSTENOL [Concomitant]
     Active Substance: EPOPROSTENOL
  16. AMBRISENTAN [Concomitant]
     Active Substance: AMBRISENTAN
     Dosage: 10 MILLIGRAM, QD (DAILY)

REACTIONS (11)
  - Respiratory syncytial virus infection [Not Recovered/Not Resolved]
  - Adverse event [Unknown]
  - COVID-19 [Unknown]
  - Nasopharyngitis [Unknown]
  - Haemoglobin decreased [Unknown]
  - Cardiac failure [Unknown]
  - Poisoning [Not Recovered/Not Resolved]
  - Malaise [Unknown]
  - Dyspnoea [Unknown]
  - Right ventricular dilatation [Unknown]
  - Off label use [Unknown]

NARRATIVE: CASE EVENT DATE: 20061214
